FAERS Safety Report 5178885-3 (Version None)
Quarter: 2006Q4

REPORT INFORMATION
  Report Type: 
  Country: None (occurrence: None)
  Receive Date: 20061208
  Receipt Date: 20061127
  Transmission Date: 20070319
  Serious: Yes (Hospitalization)
  Sender: FDA-Public Use
  Company Number: 2006-02863

PATIENT
  Age: 50 Year
  Sex: Female
  Weight: 90.7 kg

DRUGS (20)
  1. VELCADE [Suspect]
     Indication: MANTLE CELL LYMPHOMA
     Dosage: SEE IMAGE
     Route: 042
     Dates: start: 20061011
  2. CYCLOPHOSPHAMIDE [Suspect]
     Indication: MANTLE CELL LYMPHOMA
     Dosage: 720.00 MG, UNK, INTRAVENOUS
     Route: 042
  3. RITUXAN [Suspect]
     Indication: MANTLE CELL LYMPHOMA
     Dosage: 900.00 MG, UNK, INTRAVENOUS
     Route: 042
  4. DOXORUBICIN HCL [Suspect]
     Indication: MANTLE CELL LYMPHOMA
     Dosage: 60.00 MG, UNK, IV DRIP
     Route: 041
  5. DEXAMETHASONE [Suspect]
     Indication: MANTLE CELL LYMPHOMA
     Dosage: 40.00 MG, UNK, ORAL
     Route: 048
  6. VINCRISTINE [Suspect]
     Indication: MANTLE CELL LYMPHOMA
     Dosage: UNK, UNK, UNK
  7. NEULASTA [Concomitant]
  8. ACYCLOVIR [Concomitant]
  9. ALLOPURINOL [Concomitant]
  10. SENOKOT [Concomitant]
  11. ZANTAC [Concomitant]
  12. BACTRIM DS [Concomitant]
  13. LORAZEPAM [Concomitant]
  14. OXYCODONE HCL [Concomitant]
  15. ESCITALOPRAM OXALATE [Concomitant]
  16. LASIX [Concomitant]
  17. SYNTHROID [Concomitant]
  18. KAY CIEL DURA-TABS [Concomitant]
  19. CRESTOR [Concomitant]
  20. OLMESARTAN MEDOXOMIL (OLMESARTAN MEDOXOMIL) [Concomitant]

REACTIONS (15)
  - ALPHA HAEMOLYTIC STREPTOCOCCAL INFECTION [None]
  - BLOOD CULTURE POSITIVE [None]
  - BODY TEMPERATURE INCREASED [None]
  - CENTRAL LINE INFECTION [None]
  - DEPRESSED LEVEL OF CONSCIOUSNESS [None]
  - HYPOTENSION [None]
  - MENTAL STATUS CHANGES [None]
  - OXYGEN SATURATION DECREASED [None]
  - PURULENCE [None]
  - RIB FRACTURE [None]
  - ROAD TRAFFIC ACCIDENT [None]
  - SEPTIC SHOCK [None]
  - SOMNOLENCE [None]
  - SPINAL COMPRESSION FRACTURE [None]
  - TACHYCARDIA [None]
